FAERS Safety Report 6411349-5 (Version None)
Quarter: 2009Q4

REPORT INFORMATION
  Report Type: 
  Country: None (occurrence: None)
  Receive Date: 20091023
  Receipt Date: 20091016
  Transmission Date: 20100525
  Serious: Yes (Other)
  Sender: FDA-Public Use
  Company Number: US-PFIZER INC-2006067455

PATIENT
  Sex: Female
  Weight: 50 kg

DRUGS (6)
  1. PROVERA [Suspect]
     Indication: MENOPAUSE
     Dosage: 2.5 MG, UNK
     Route: 048
     Dates: start: 19920401, end: 20000401
  2. PREMARIN [Suspect]
     Indication: HORMONE REPLACEMENT THERAPY
     Dosage: 0.3 AND 0.625MG
     Route: 065
     Dates: start: 19920401, end: 20000401
  3. PREMARIN [Suspect]
     Indication: NERVOUSNESS
     Dosage: UNK
     Dates: end: 19840101
  4. PREMARIN [Suspect]
     Indication: MENOPAUSE
  5. PREMARIN [Suspect]
     Indication: MENOPAUSE
     Dosage: UNK
     Dates: end: 19840101
  6. ESTROGENS [Suspect]
     Indication: HORMONE REPLACEMENT THERAPY
     Dosage: UNK
     Dates: start: 19840101

REACTIONS (1)
  - BREAST CANCER FEMALE [None]
